FAERS Safety Report 18178307 (Version 6)
Quarter: 2021Q1

REPORT INFORMATION
  Report Type: Spontaneous
  Country: US (occurrence: US)
  Receive Date: 20200821
  Receipt Date: 20210107
  Transmission Date: 20210419
  Serious: No
  Sender: FDA-Public Use
  Company Number: US-BIOGEN-2020BI00903410

PATIENT
  Age: 43 Year
  Sex: Male

DRUGS (1)
  1. TYSABRI [Suspect]
     Active Substance: NATALIZUMAB
     Indication: MULTIPLE SCLEROSIS
     Route: 065
     Dates: start: 20191003, end: 20200527

REACTIONS (7)
  - Multiple sclerosis [Unknown]
  - Drug ineffective [Unknown]
  - Abdominal pain lower [Unknown]
  - Fall [Recovered/Resolved]
  - Pyrexia [Unknown]
  - Headache [Recovered/Resolved]
  - Blood urine present [Unknown]

NARRATIVE: CASE EVENT DATE: 202009
